FAERS Safety Report 9876159 (Version 1)
Quarter: 2014Q1

REPORT INFORMATION
  Report Type: Other
  Country: US (occurrence: US)
  Receive Date: 20140206
  Receipt Date: 20140206
  Transmission Date: 20141002
  Serious: No
  Sender: FDA-Public Use
  Company Number: US-ACORDA-ACO_35976_2013

PATIENT
  Age: 61 Year
  Sex: Female
  Weight: 54.42 kg

DRUGS (2)
  1. AMPYRA [Suspect]
     Indication: NERVE INJURY
     Dosage: 1/2 TABLET, QD
     Route: 048
     Dates: start: 20130425, end: 2013
  2. AMPYRA [Suspect]
     Dosage: 10 MG, QD
     Route: 048
     Dates: start: 2013

REACTIONS (6)
  - Wrong technique in drug usage process [Unknown]
  - Asthenia [Unknown]
  - Dizziness [Unknown]
  - Nausea [Unknown]
  - Oropharyngeal pain [Unknown]
  - Off label use [Unknown]
